FAERS Safety Report 22253199 (Version 2)
Quarter: 2023Q2

REPORT INFORMATION
  Report Type: Other
  Country: US (occurrence: None)
  Receive Date: 20230426
  Receipt Date: 20230620
  Transmission Date: 20230722
  Serious: Yes (Other)
  Sender: FDA-Public Use
  Company Number: US-ROCHE-3336323

PATIENT
  Age: 75 Year
  Sex: Male
  Weight: 94.886 kg

DRUGS (3)
  1. RITUXAN [Suspect]
     Active Substance: RITUXIMAB
     Indication: Follicular lymphoma
     Route: 065
  2. BENDEKA [Suspect]
     Active Substance: BENDAMUSTINE HYDROCHLORIDE
     Indication: Follicular lymphoma
     Route: 065
  3. REVLIMID [Concomitant]
     Active Substance: LENALIDOMIDE

REACTIONS (7)
  - Myocardial infarction [Unknown]
  - Cardiac failure congestive [Unknown]
  - Diabetes mellitus [Unknown]
  - Chronic kidney disease [Unknown]
  - Hypertension [Unknown]
  - Renal impairment [Unknown]
  - Creatinine renal clearance decreased [Unknown]
